FAERS Safety Report 5583225-1 (Version None)
Quarter: 2008Q1

REPORT INFORMATION
  Report Type: 
  Country: None (occurrence: None)
  Receive Date: 20080103
  Receipt Date: 20080103
  Transmission Date: 20080703
  Serious: Yes (Hospitalization)
  Sender: FDA-Public Use
  Company Number: None

PATIENT
  Age: 75 Year
  Sex: Male

DRUGS (2)
  1. NAPROXEN [Suspect]
     Indication: BACK PAIN
     Dosage: 220MG  QID  PO
     Route: 048
  2. ASPIRIN [Suspect]
     Indication: DRUG THERAPY
     Dosage: 81MG  DAILY  PO  (DURATION: ^CHRONIC THERAPY^ )
     Route: 048

REACTIONS (6)
  - ANAEMIA [None]
  - DUODENAL ULCER [None]
  - FALL [None]
  - GASTRITIS EROSIVE [None]
  - HAEMATOCHEZIA [None]
  - SYNCOPE [None]
